FAERS Safety Report 14650020 (Version 1)
Quarter: 2018Q1

REPORT INFORMATION
  Report Type: Spontaneous
  Country: US (occurrence: US)
  Receive Date: 20180316
  Receipt Date: 20180316
  Transmission Date: 20180509
  Serious: Yes (Disabling, Other)
  Sender: FDA-Public Use
  Company Number: None

PATIENT
  Age: 62 Year
  Sex: Female
  Weight: 63.5 kg

DRUGS (12)
  1. VICTOZA [Suspect]
     Active Substance: LIRAGLUTIDE
     Indication: TYPE 2 DIABETES MELLITUS
     Dosage: 18MG/3ML 1.2 MG ONCE DAILY IN A.M. SUBCUTANEOUSLY?
     Route: 058
     Dates: start: 20160201, end: 20180228
  2. GLUCOTROL [Concomitant]
     Active Substance: GLIPIZIDE
  3. NEURONTIN [Concomitant]
     Active Substance: GABAPENTIN
  4. GLUCOPHAGE [Concomitant]
     Active Substance: METFORMIN HYDROCHLORIDE
  5. XS TYLENOL [Concomitant]
  6. OMEPRAZOLE. [Concomitant]
     Active Substance: OMEPRAZOLE
  7. TOPAMAX [Concomitant]
     Active Substance: TOPIRAMATE
  8. MAGNESIUM [Concomitant]
     Active Substance: MAGNESIUM
  9. CELEXA [Concomitant]
     Active Substance: CITALOPRAM HYDROBROMIDE
  10. IMDUR [Concomitant]
     Active Substance: ISOSORBIDE MONONITRATE
  11. CELEBREX [Concomitant]
     Active Substance: CELECOXIB
  12. ATENOLOL. [Concomitant]
     Active Substance: ATENOLOL

REACTIONS (4)
  - Weight decreased [None]
  - Palpitations [None]
  - Abdominal pain upper [None]
  - Nausea [None]

NARRATIVE: CASE EVENT DATE: 20180224
